FAERS Safety Report 5536661-3 (Version None)
Quarter: 2007Q4

REPORT INFORMATION
  Report Type: 
  Country: None (occurrence: None)
  Receive Date: 20071206
  Receipt Date: 20070710
  Transmission Date: 20080405
  Serious: Yes (Hospitalization, Other)
  Sender: FDA-Public Use
  Company Number: US-AMGEN-KDL228517

PATIENT
  Sex: Female

DRUGS (2)
  1. ENBREL [Suspect]
     Indication: PSORIATIC ARTHROPATHY
     Route: 058
     Dates: start: 20061107
  2. PROZAC [Concomitant]

REACTIONS (8)
  - FATIGUE [None]
  - HAEMORRHAGIC DIATHESIS [None]
  - HYPOTENSION [None]
  - LYMPHADENOPATHY [None]
  - MAMMOGRAM ABNORMAL [None]
  - PALLOR [None]
  - SKIN DISCOLOURATION [None]
  - VASODILATATION [None]
